FAERS Safety Report 6200481-7 (Version None)
Quarter: 2009Q2

REPORT INFORMATION
  Report Type: 
  Country: None (occurrence: None)
  Receive Date: 20090522
  Receipt Date: 20090514
  Transmission Date: 20091009
  Serious: Yes (Hospitalization, Other)
  Sender: FDA-Public Use
  Company Number: US-AMGEN-QUU329132

PATIENT
  Sex: Female
  Weight: 63.6 kg

DRUGS (7)
  1. ENBREL [Suspect]
     Indication: RHEUMATOID ARTHRITIS
     Route: 058
     Dates: start: 20060801
  2. PAXIL [Concomitant]
     Route: 048
     Dates: start: 20020101, end: 20070910
  3. BUSPAR [Concomitant]
     Route: 048
     Dates: start: 20040801
  4. UNSPECIFIED VITAMINS [Concomitant]
     Route: 048
     Dates: start: 20010911
  5. PROZAC [Concomitant]
     Route: 048
     Dates: start: 20070901
  6. PHENERGAN [Concomitant]
     Route: 048
     Dates: start: 20070901, end: 20080501
  7. UNSPECIFIED MEDICATION [Concomitant]

REACTIONS (8)
  - ALLERGIC RESPIRATORY DISEASE [None]
  - BREECH PRESENTATION [None]
  - DIZZINESS [None]
  - FATIGUE [None]
  - GESTATIONAL DIABETES [None]
  - INJECTION SITE REACTION [None]
  - MALAISE [None]
  - RHINORRHOEA [None]
